FAERS Safety Report 6841934-8 (Version None)
Quarter: 2010Q3

REPORT INFORMATION
  Report Type: 
  Country: None (occurrence: None)
  Receive Date: 20100714
  Receipt Date: 20070908
  Transmission Date: 20110219
  Serious: Yes (Other)
  Sender: FDA-Public Use
  Company Number: US-PFIZER INC-2007060170

PATIENT
  Sex: Male
  Weight: 111.1 kg

DRUGS (2)
  1. CHANTIX [Suspect]
     Indication: SMOKING CESSATION THERAPY
     Dates: start: 20070709, end: 20070713
  2. ANTIBIOTICS [Concomitant]
     Indication: SINUSITIS

REACTIONS (6)
  - ANXIETY [None]
  - DISORIENTATION [None]
  - DYSPEPSIA [None]
  - NAUSEA [None]
  - ROAD TRAFFIC ACCIDENT [None]
  - VOMITING [None]
